APPROVED DRUG PRODUCT: CEFPROZIL
Active Ingredient: CEFPROZIL
Strength: 250MG
Dosage Form/Route: TABLET;ORAL
Application: A065235 | Product #001 | TE Code: AB
Applicant: CHARTWELL RX SCIENCES LLC
Approved: Nov 14, 2005 | RLD: No | RS: No | Type: RX